FAERS Safety Report 23727226 (Version 1)
Quarter: 2024Q2

REPORT INFORMATION
  Report Type: Spontaneous
  Country: IL (occurrence: IL)
  Receive Date: 20240410
  Receipt Date: 20240410
  Transmission Date: 20240716
  Serious: Yes (Hospitalization, Other)
  Sender: FDA-Public Use
  Company Number: IL-PFIZER INC-PV202400045277

PATIENT
  Age: 30 Year
  Sex: Female
  Weight: 110 kg

DRUGS (3)
  1. MISOPROSTOL [Suspect]
     Active Substance: MISOPROSTOL
     Indication: Uterine haemorrhage
     Dosage: 800 UG
     Route: 002
  2. MISOPROSTOL [Suspect]
     Active Substance: MISOPROSTOL
     Indication: Haematocolpos
  3. MISOPROSTOL [Suspect]
     Active Substance: MISOPROSTOL
     Indication: Cervical spinal stenosis

REACTIONS (3)
  - Gastrointestinal anastomotic leak [Unknown]
  - Off label use [Unknown]
  - Drug effective for unapproved indication [Unknown]
